FAERS Safety Report 5332944-0 (Version None)
Quarter: 2007Q1

REPORT INFORMATION
  Report Type: 
  Country: None (occurrence: None)
  Receive Date: 20070306
  Receipt Date: 20060908
  Transmission Date: 20070707
  Serious: Yes (Other)
  Sender: FDA-Public Use
  Company Number: A03200605597

PATIENT

DRUGS (2)
  1. PLAVIX [Suspect]
     Indication: PERCUTANEOUS CORONARY INTERVENTION
     Dosage: 600 MG LOADING DOSE FOLLOWED BY 75 MG QD THEREAFTER - ORAL
     Route: 048
  2. ACETYLSALICYLIC ACID SRT [Suspect]
     Indication: PERCUTANEOUS CORONARY INTERVENTION
     Dosage: ORAL
     Route: 048

REACTIONS (3)
  - DRUG RESISTANCE [None]
  - PRESCRIBED OVERDOSE [None]
  - THROMBOSIS IN DEVICE [None]
